FAERS Safety Report 11787529 (Version 2)
Quarter: 2015Q4

REPORT INFORMATION
  Report Type: Report from Study
  Country: DE (occurrence: DE)
  Receive Date: 20151130
  Receipt Date: 20151210
  Transmission Date: 20160305
  Serious: Yes (Hospitalization, Other)
  Sender: FDA-Public Use
  Company Number: DE-ABBVIE-15P-062-1506580-00

PATIENT
  Age: 70 Year
  Sex: Male
  Weight: 100 kg

DRUGS (2)
  1. ISENTRESS [Suspect]
     Active Substance: RALTEGRAVIR POTASSIUM
     Indication: PRODUCT USED FOR UNKNOWN INDICATION
     Dosage: 1-0-1
     Route: 048
     Dates: start: 20121207
  2. KALETRA [Suspect]
     Active Substance: LOPINAVIR\RITONAVIR
     Indication: HIV INFECTION
     Route: 048
     Dates: start: 20121207

REACTIONS (10)
  - Affective disorder [Unknown]
  - Dementia [Unknown]
  - Abdominal pain [Unknown]
  - Diarrhoea [Unknown]
  - Carotid artery stenosis [Not Recovered/Not Resolved]
  - Carotid artery aneurysm [Unknown]
  - Arteriosclerosis [Recovered/Resolved]
  - Carotid artery thrombosis [Recovered/Resolved]
  - Sleep disorder [Unknown]
  - Basal cell carcinoma [Recovered/Resolved]

NARRATIVE: CASE EVENT DATE: 20130228
